FAERS Safety Report 5725824-X (Version None)
Quarter: 2008Q2

REPORT INFORMATION
  Report Type: 
  Country: None (occurrence: None)
  Receive Date: 20080429
  Receipt Date: 20080418
  Transmission Date: 20081010
  Serious: Yes (Other)
  Sender: FDA-Public Use
  Company Number: 2008US000757

PATIENT
  Sex: Female

DRUGS (5)
  1. PROGRAF [Suspect]
     Indication: RENAL AND PANCREAS TRANSPLANT
     Dosage: 1 MG, BID ; 0.5 MG, BID
  2. PREDNISOLONE ACETATE [Concomitant]
  3. NAMENDA [Concomitant]
  4. LEVOXYL [Concomitant]
  5. CYTOMEL [Concomitant]

REACTIONS (6)
  - CARDIAC HYPERTROPHY [None]
  - HEPATIC ENZYME INCREASED [None]
  - ILL-DEFINED DISORDER [None]
  - OEDEMA PERIPHERAL [None]
  - PORTAL VEIN PRESSURE INCREASED [None]
  - PULMONARY ARTERIAL HYPERTENSION [None]
